FAERS Safety Report 9753228 (Version 1)
Quarter: 2013Q4

REPORT INFORMATION
  Report Type: Spontaneous
  Country: US (occurrence: US)
  Receive Date: 20131213
  Receipt Date: 20131213
  Transmission Date: 20140711
  Serious: No
  Sender: FDA-Public Use
  Company Number: US-GILEAD-2010-0027632

PATIENT
  Sex: Female
  Weight: 68.04 kg

DRUGS (15)
  1. LETAIRIS [Suspect]
     Indication: PULMONARY ARTERIAL HYPERTENSION
     Route: 048
     Dates: start: 20090406
  2. FOLIC ACID [Concomitant]
  3. COREG [Concomitant]
  4. LASIX [Concomitant]
  5. ESTRADIOL [Concomitant]
  6. LORTAB [Concomitant]
  7. CYMBALTA [Concomitant]
  8. DEMADEX [Concomitant]
  9. ZOCOR [Concomitant]
  10. NEURONTIN [Concomitant]
  11. PRINIVIL [Concomitant]
  12. ALDACTONE [Concomitant]
  13. SPIRIVA [Concomitant]
  14. PLAVIX [Concomitant]
  15. OXYCONTIN [Concomitant]

REACTIONS (1)
  - Pruritus [Unknown]
